FAERS Safety Report 6290194-8 (Version None)
Quarter: 2009Q3

REPORT INFORMATION
  Report Type: 
  Country: None (occurrence: None)
  Receive Date: 20090730
  Receipt Date: 20090310
  Transmission Date: 20100115
  Serious: No
  Sender: FDA-Public Use
  Company Number: US-BRISTOL-MYERS SQUIBB COMPANY-14462576

PATIENT
  Age: 74 Year
  Sex: Female

DRUGS (2)
  1. COUMADIN [Suspect]
     Route: 048
     Dates: start: 20050401, end: 20070901
  2. EVISTA [Suspect]
     Indication: OSTEOPOROSIS
     Route: 048
     Dates: start: 20050401, end: 20070901

REACTIONS (1)
  - DIZZINESS [None]
